FAERS Safety Report 25595332 (Version 2)
Quarter: 2025Q3

REPORT INFORMATION
  Report Type: Spontaneous
  Country: US (occurrence: US)
  Receive Date: 20250723
  Receipt Date: 20250806
  Transmission Date: 20251020
  Serious: Yes (Other)
  Sender: NOVARTIS
  Company Number: US-002147023-NVSC2025US114410

PATIENT
  Age: 81 Year
  Sex: Female
  Weight: 93.44 kg

DRUGS (1)
  1. KISQALI [Suspect]
     Active Substance: RIBOCICLIB SUCCINATE
     Indication: Breast cancer
     Dosage: 400 MG, QD (FOR 21 DAYS, THEN 7 DAYS OFF)
     Route: 048
     Dates: start: 20250217, end: 20250501

REACTIONS (3)
  - Pneumonia [Recovered/Resolved]
  - Stomatitis [Recovered/Resolved]
  - Hypoglycaemia [Recovered/Resolved]

NARRATIVE: CASE EVENT DATE: 20250501
